FAERS Safety Report 7377687-7 (Version None)
Quarter: 2011Q1

REPORT INFORMATION
  Report Type: 
  Country: None (occurrence: None)
  Receive Date: 20110328
  Receipt Date: 20110314
  Transmission Date: 20110831
  Serious: Yes (Other)
  Sender: FDA-Public Use
  Company Number: CA-JNJFOC-20110307340

PATIENT
  Sex: Female
  Weight: 55 kg

DRUGS (6)
  1. TRAMADOL HYDROCHLORIDE/ACETAMINOPHEN [Concomitant]
  2. REMICADE [Suspect]
     Indication: CROHN'S DISEASE
     Route: 042
  3. ATIVAN [Concomitant]
     Dosage: ATIVAN AS NEEDED
  4. REMERON [Concomitant]
  5. ALPRAZOLAM [Concomitant]
  6. TRIDURAL [Concomitant]

REACTIONS (2)
  - OVARIAN RUPTURE [None]
  - CYSTITIS [None]
